FAERS Safety Report 5939124-6 (Version None)
Quarter: 2008Q4

REPORT INFORMATION
  Report Type: 
  Country: None (occurrence: None)
  Receive Date: 20081103
  Receipt Date: 20081024
  Transmission Date: 20090506
  Serious: Yes (Other)
  Sender: FDA-Public Use
  Company Number: JP-BRISTOL-MYERS SQUIBB COMPANY-14389019

PATIENT
  Sex: Female

DRUGS (2)
  1. ABILIFY [Suspect]
     Indication: SCHIZOPHRENIA
     Route: 048
     Dates: start: 20080902
  2. ZYPREXA [Suspect]
     Indication: SCHIZOPHRENIA
     Dosage: FORMULATION - TABS
     Route: 048
     Dates: end: 20081001

REACTIONS (1)
  - ILEUS [None]
